FAERS Safety Report 5824439-2 (Version None)
Quarter: 2008Q3

REPORT INFORMATION
  Report Type: 
  Country: None (occurrence: None)
  Receive Date: 20080728
  Receipt Date: 20080722
  Transmission Date: 20090109
  Serious: Yes (Hospitalization, Other)
  Sender: FDA-Public Use
  Company Number: B0527407A

PATIENT
  Age: 41 Year
  Sex: Female

DRUGS (9)
  1. PAXIL [Suspect]
     Indication: PANIC DISORDER
     Dosage: 30MG TWICE PER DAY
     Route: 048
  2. PAXIL [Suspect]
     Dosage: 20MG PER DAY
     Route: 048
     Dates: start: 20080601
  3. AMOXAPINE [Suspect]
     Indication: DEPRESSION
     Dosage: 30MG THREE TIMES PER DAY
     Route: 048
     Dates: start: 20080301, end: 20080524
  4. UNKNOWN DRUG [Suspect]
     Dates: start: 20080510
  5. SOLANAX [Concomitant]
     Indication: PANIC DISORDER
     Dosage: 3.6MG PER DAY
     Route: 048
  6. DEPAS [Concomitant]
     Indication: PANIC DISORDER
     Dosage: 4.5MG PER DAY
     Route: 048
  7. SILECE [Concomitant]
     Indication: INSOMNIA
     Dosage: 2MG PER DAY
     Route: 048
  8. HALCION [Concomitant]
     Indication: INSOMNIA
     Dosage: .125MG PER DAY
     Route: 048
  9. EURODIN [Concomitant]
     Indication: INSOMNIA
     Dosage: 2MG PER DAY
     Route: 048

REACTIONS (5)
  - BRADYCARDIA [None]
  - ELECTROCARDIOGRAM QT PROLONGED [None]
  - OVERDOSE [None]
  - SUICIDE ATTEMPT [None]
  - SYNCOPE [None]
